FAERS Safety Report 4679943-X (Version None)
Quarter: 2005Q2

REPORT INFORMATION
  Report Type: 
  Country: None (occurrence: None)
  Receive Date: 20050531
  Receipt Date: 20050516
  Transmission Date: 20051028
  Serious: Yes (Hospitalization, Disabling)
  Sender: FDA-Public Use
  Company Number: B0381926A

PATIENT
  Age: 50 Year
  Sex: Male

DRUGS (10)
  1. HYCAMTIN [Suspect]
     Indication: SMALL CELL LUNG CANCER STAGE UNSPECIFIED
     Dosage: INTRAVENOUS
     Route: 042
     Dates: start: 20041102, end: 20041203
  2. CARBOPLATIN [Concomitant]
  3. IRINOTECAN [Concomitant]
  4. METOCLOPRAMIDE [Concomitant]
  5. MAGNESIUM  OXIDE [Concomitant]
  6. FAMOTIDINE [Concomitant]
  7. CARBOCISTEINE [Concomitant]
  8. DIMEMORFAN PHOSPHATE [Concomitant]
  9. CODEINE PHOSPHATE [Concomitant]
  10. DEXTROMETHORPHAN HBR [Concomitant]

REACTIONS (5)
  - ANAEMIA [None]
  - BLOOD LACTATE DEHYDROGENASE INCREASED [None]
  - LEUKOPENIA [None]
  - THROMBOCYTOPENIA [None]
  - WHITE BLOOD CELL DISORDER [None]
